FAERS Safety Report 6750425-4 (Version None)
Quarter: 2010Q2

REPORT INFORMATION
  Report Type: 
  Country: None (occurrence: None)
  Receive Date: 20100601
  Receipt Date: 20100519
  Transmission Date: 20101027
  Serious: Yes (Hospitalization)
  Sender: FDA-Public Use
  Company Number: CA-ELI_LILLY_AND_COMPANY-CA201005007022

PATIENT
  Age: 76 Year
  Sex: Male
  Weight: 56.689 kg

DRUGS (4)
  1. ZYPREXA ZYDIS [Suspect]
     Indication: DEMENTIA
     Dosage: 5 MG, DAILY (1/D)
     Dates: start: 20090113, end: 20090203
  2. ZYPREXA ZYDIS [Suspect]
     Dosage: 10 MG, DAILY (1/D)
     Dates: start: 20090203, end: 20090317
  3. ZYPREXA ZYDIS [Suspect]
     Dosage: 5 MG, DAILY (1/D)
     Dates: start: 20090317
  4. ZYPREXA [Suspect]
     Dosage: UNK, DAILY (1/D)

REACTIONS (7)
  - AGGRESSION [None]
  - CONFUSIONAL STATE [None]
  - HALLUCINATION [None]
  - HOSPITALISATION [None]
  - INSOMNIA [None]
  - OEDEMA PERIPHERAL [None]
  - OFF LABEL USE [None]
